FAERS Safety Report 7744819-8 (Version None)
Quarter: 2011Q3

REPORT INFORMATION
  Report Type: 
  Country: None (occurrence: None)
  Receive Date: 20110912
  Receipt Date: 20110912
  Transmission Date: 20111222
  Serious: Yes (Other)
  Sender: FDA-Public Use
  Company Number: None

PATIENT
  Age: 50 Year
  Sex: Female
  Weight: 49.895 kg

DRUGS (1)
  1. MACROBID [Suspect]

REACTIONS (5)
  - CHILLS [None]
  - WHEEZING [None]
  - COUGH [None]
  - PYREXIA [None]
  - DYSPNOEA [None]
